FAERS Safety Report 26176151 (Version 1)
Quarter: 2025Q4

REPORT INFORMATION
  Report Type: Spontaneous
  Country: US (occurrence: None)
  Receive Date: 20251218
  Receipt Date: 20251218
  Transmission Date: 20260119
  Serious: No
  Sender: FDA-CTU
  Company Number: None

PATIENT
  Age: 6 Year
  Sex: Male
  Weight: 18.9 kg

DRUGS (4)
  1. OSELTAMIVIR [Suspect]
     Active Substance: OSELTAMIVIR
     Indication: Influenza
     Dosage: OTHER QUANTITY : 7.5 ML;?FREQUENCY : TWICE A DAY;
     Route: 048
     Dates: start: 20251215, end: 20251217
  2. AMOXICILLIN [Concomitant]
     Active Substance: AMOXICILLIN
  3. ACETAMINOPHEN [Concomitant]
     Active Substance: ACETAMINOPHEN
  4. IBUPROFEN [Concomitant]
     Active Substance: IBUPROFEN

REACTIONS (2)
  - Abnormal behaviour [None]
  - Impulsive behaviour [None]

NARRATIVE: CASE EVENT DATE: 20251217
